FAERS Safety Report 4796524-8 (Version None)
Quarter: 2005Q4

REPORT INFORMATION
  Report Type: 
  Country: None (occurrence: None)
  Receive Date: 20051011
  Receipt Date: 20050407
  Transmission Date: 20060501
  Serious: Yes (Hospitalization)
  Sender: FDA-Public Use
  Company Number: 2005-BP-05718BP

PATIENT
  Sex: Female

DRUGS (5)
  1. CATAPRES [Suspect]
     Indication: HYPERTENSION
     Dosage: 0.05 MG (2.5 MG, 1/2 PATCH Q WEEK), TO
     Route: 061
     Dates: start: 20020201
  2. HYDROCHLOROTHIAZIDE [Concomitant]
  3. PROPRANOLOL [Concomitant]
  4. ENALAPRIL MALEATE [Concomitant]
  5. LORAZEPAM [Concomitant]

REACTIONS (1)
  - BLOOD PRESSURE INCREASED [None]
